FAERS Safety Report 7464194-6 (Version None)
Quarter: 2011Q2

REPORT INFORMATION
  Report Type: 
  Country: None (occurrence: None)
  Receive Date: 20110506
  Receipt Date: 20110427
  Transmission Date: 20111010
  Serious: Yes (Hospitalization)
  Sender: FDA-Public Use
  Company Number: CA-ASTRAZENECA-2011SE24114

PATIENT
  Age: 76 Year
  Sex: Female

DRUGS (1)
  1. CRESTOR [Suspect]
     Route: 048
     Dates: start: 20100101

REACTIONS (3)
  - BLADDER DISORDER [None]
  - MOBILITY DECREASED [None]
  - RENAL FAILURE [None]
